FAERS Safety Report 8649082 (Version 2)
Quarter: 2012Q4

REPORT INFORMATION
  Report Type: 
  Country: CA (occurrence: CA)
  Receive Date: 20120704
  Receipt Date: 20121121
  Transmission Date: 20130627
  Serious: Yes (Other)
  Sender: FDA-Public Use
  Company Number: CA-BRISTOL-MYERS SQUIBB COMPANY-16714271

PATIENT
  Age: 60 Year
  Sex: Female

DRUGS (5)
  1. ONGLYZA TABS [Suspect]
     Indication: BLOOD GLUCOSE INCREASED
     Route: 048
     Dates: start: 20120301, end: 20120601
  2. QUETIAPINE [Concomitant]
  3. RAMIPRIL [Concomitant]
  4. CORTISONE [Concomitant]
  5. METFORMIN HCL [Concomitant]

REACTIONS (2)
  - Urinary bladder haemorrhage [Recovered/Resolved]
  - Abdominal pain upper [Recovered/Resolved]
